FAERS Safety Report 8616162-6 (Version None)
Quarter: 2012Q3

REPORT INFORMATION
  Report Type: 
  Country: None (occurrence: None)
  Receive Date: 20120823
  Receipt Date: 20120815
  Transmission Date: 20120928
  Serious: Yes (Hospitalization, Disabling, Other)
  Sender: FDA-Public Use
  Company Number: US-009507513-1206USA04715

PATIENT

DRUGS (3)
  1. FOSAMAX PLUS D [Suspect]
     Dosage: 70 MG, UNK
     Route: 048
  2. VITAMINS (UNSPECIFIED) [Concomitant]
     Dosage: UNK
  3. FOSAMAX [Suspect]
     Indication: OSTEOPOROSIS
     Dosage: 70 MG, UNK
     Route: 048
     Dates: start: 19980101, end: 20080717

REACTIONS (6)
  - STRESS FRACTURE [None]
  - FEMUR FRACTURE [None]
  - LOW TURNOVER OSTEOPATHY [None]
  - ATRIAL FIBRILLATION [None]
  - INTRAMEDULLARY ROD INSERTION [None]
  - OSTEOPOROSIS [None]
